FAERS Safety Report 23417718 (Version 2)
Quarter: 2025Q1

REPORT INFORMATION
  Report Type: Spontaneous
  Country: US (occurrence: US)
  Receive Date: 20240118
  Receipt Date: 20250115
  Transmission Date: 20250409
  Serious: No
  Sender: SK LIFE SCIENCE
  Company Number: US-SK LIFE SCIENCE, INC-SKPVG-2023-001270

PATIENT

DRUGS (4)
  1. XCOPRI [Suspect]
     Active Substance: CENOBAMATE
     Indication: Seizure
     Dosage: 250 MILLIGRAM, QD
     Route: 048
     Dates: start: 202309, end: 202309
  2. XCOPRI [Suspect]
     Active Substance: CENOBAMATE
     Indication: Myoclonic epilepsy
     Dosage: 250MG, ONCE A DAY
     Route: 048
     Dates: end: 20241027
  3. VALPROIC ACID [Concomitant]
     Active Substance: VALPROIC ACID
     Indication: Product used for unknown indication
     Route: 065
  4. KEPPRA [Concomitant]
     Active Substance: LEVETIRACETAM
     Indication: Product used for unknown indication
     Dosage: 500 MG ONCE A DAY
     Route: 065

REACTIONS (8)
  - Product dose omission issue [Recovered/Resolved]
  - Product use issue [Unknown]
  - Product prescribing error [Unknown]
  - Seizure [Recovered/Resolved]
  - Product use issue [Not Recovered/Not Resolved]
  - Seizure [Recovered/Resolved]
  - Product dose omission issue [Recovered/Resolved]
  - Off label use [Not Recovered/Not Resolved]

NARRATIVE: CASE EVENT DATE: 20230901
